FAERS Safety Report 18708599 (Version 1)
Quarter: 2021Q1

REPORT INFORMATION
  Report Type: Report from Study
  Country: BR (occurrence: BR)
  Receive Date: 20210106
  Receipt Date: 20210106
  Transmission Date: 20210419
  Serious: Yes (Death, Hospitalization)
  Sender: FDA-Public Use
  Company Number: NVSC2021BR002097

PATIENT

DRUGS (1)
  1. VOTRIENT [Suspect]
     Active Substance: PAZOPANIB HYDROCHLORIDE
     Indication: NEOPLASM MALIGNANT
     Dosage: 4 DF
     Route: 065
     Dates: start: 20201210

REACTIONS (2)
  - Malignant neoplasm progression [Fatal]
  - Apnoea [Fatal]

NARRATIVE: CASE EVENT DATE: 20201213
